FAERS Safety Report 23293972 (Version 1)
Quarter: 2023Q4

REPORT INFORMATION
  Report Type: Spontaneous
  Country: GB (occurrence: GB)
  Receive Date: 20231213
  Receipt Date: 20231213
  Transmission Date: 20240110
  Serious: Yes (Other)
  Sender: FDA-Public Use
  Company Number: None

PATIENT
  Age: 74 Year
  Sex: Female
  Weight: 54 kg

DRUGS (1)
  1. FELODIPINE [Suspect]
     Active Substance: FELODIPINE
     Indication: Hypertension
     Dosage: 2.5 MILLIGRAM
     Route: 065

REACTIONS (2)
  - Asthma [Not Recovered/Not Resolved]
  - Medication error [Unknown]

NARRATIVE: CASE EVENT DATE: 20231207
